FAERS Safety Report 17878725 (Version 9)
Quarter: 2021Q1

REPORT INFORMATION
  Report Type: Spontaneous
  Country: DE (occurrence: DE)
  Receive Date: 20200610
  Receipt Date: 20210122
  Transmission Date: 20210419
  Serious: Yes (Life-Threatening, Hospitalization, Disabling, Other)
  Sender: FDA-Public Use
  Company Number: DE-SA-2020SA143968

PATIENT
  Age: 30 Year
  Sex: Male
  Weight: 73 kg

DRUGS (8)
  1. LEMTRADA [Suspect]
     Active Substance: ALEMTUZUMAB
     Indication: MULTIPLE SCLEROSIS
     Dosage: UNK UNK, QD
     Route: 042
     Dates: start: 20190820, end: 20190822
  2. LEMTRADA [Suspect]
     Active Substance: ALEMTUZUMAB
     Dosage: UNK UNK, QD
     Route: 041
     Dates: start: 20180820, end: 20180824
  3. BACLOFEN. [Concomitant]
     Active Substance: BACLOFEN
     Indication: MUSCLE SPASTICITY
  4. TAMSULOSIN [Concomitant]
     Active Substance: TAMSULOSIN
     Indication: MULTIPLE SCLEROSIS
     Dosage: UNK
     Route: 048
  5. DEKRISTOL [Concomitant]
     Active Substance: CHOLECALCIFEROL
     Indication: VITAMIN D DEFICIENCY
     Dosage: 1000 IU
     Route: 048
  6. FAMPYRA [Concomitant]
     Active Substance: DALFAMPRIDINE
     Indication: MULTIPLE SCLEROSIS
     Dosage: 10 MG, BID
     Route: 048
     Dates: start: 201512
  7. FAMPYRA [Concomitant]
     Active Substance: DALFAMPRIDINE
     Indication: GAIT DISTURBANCE
  8. BACLOFEN. [Concomitant]
     Active Substance: BACLOFEN
     Indication: MULTIPLE SCLEROSIS
     Dosage: 10 MG, TID
     Route: 048
     Dates: start: 201701

REACTIONS (37)
  - Leukopenia [Unknown]
  - Injury [Unknown]
  - Blood calcium decreased [Recovered/Resolved]
  - Mean cell haemoglobin increased [Unknown]
  - Serum ferritin increased [Unknown]
  - Gamma-glutamyltransferase increased [Recovering/Resolving]
  - Splenic haematoma [Unknown]
  - Acute hepatic failure [Recovering/Resolving]
  - Reticulocyte percentage increased [Unknown]
  - Protein total decreased [Recovering/Resolving]
  - Blood thyroid stimulating hormone increased [Unknown]
  - Abdominal pain [Unknown]
  - Alanine aminotransferase increased [Unknown]
  - Blood bilirubin increased [Not Recovered/Not Resolved]
  - Blood lactate dehydrogenase increased [Recovering/Resolving]
  - Red cell distribution width increased [Recovered/Resolved]
  - Asthenia [Not Recovered/Not Resolved]
  - Haematocrit decreased [Unknown]
  - Lymphocyte percentage decreased [Not Recovered/Not Resolved]
  - Autoimmune haemolytic anaemia [Recovering/Resolving]
  - Platelet count decreased [Recovering/Resolving]
  - High density lipoprotein decreased [Unknown]
  - Blood glucose increased [Recovered/Resolved]
  - White blood cell count decreased [Unknown]
  - Fall [Unknown]
  - Red blood cell count decreased [Unknown]
  - Chromaturia [Unknown]
  - Immune thrombocytopenia [Recovering/Resolving]
  - Haemoglobin decreased [Not Recovered/Not Resolved]
  - Aspartate aminotransferase increased [Unknown]
  - Haptoglobin decreased [Unknown]
  - Monocyte percentage increased [Unknown]
  - General physical health deterioration [Unknown]
  - Blood uric acid increased [Unknown]
  - Mean cell volume increased [Unknown]
  - Neutrophil percentage increased [Not Recovered/Not Resolved]
  - Ceruloplasmin decreased [Unknown]

NARRATIVE: CASE EVENT DATE: 2020
